FAERS Safety Report 14327183 (Version 1)
Quarter: 2017Q4

REPORT INFORMATION
  Report Type: Spontaneous
  Country: US (occurrence: US)
  Receive Date: 20171226
  Receipt Date: 20171226
  Transmission Date: 20180321
  Serious: Yes (Hospitalization)
  Sender: FDA-Public Use
  Company Number: None

PATIENT
  Age: 79 Year
  Sex: Male
  Weight: 54 kg

DRUGS (1)
  1. HYDROXYZINE [Suspect]
     Active Substance: HYDROXYZINE HYDROCHLORIDE
     Indication: NIGHTMARE
     Route: 048
     Dates: start: 20170714, end: 20170807

REACTIONS (3)
  - Confusional state [None]
  - Hallucination [None]
  - Mental status changes [None]

NARRATIVE: CASE EVENT DATE: 20170716
